FAERS Safety Report 9780281 (Version 1)
Quarter: 2013Q4

REPORT INFORMATION
  Report Type: Spontaneous
  Country: US (occurrence: US)
  Receive Date: 20131223
  Receipt Date: 20131223
  Transmission Date: 20140711
  Serious: Yes (Life-Threatening, Other)
  Sender: FDA-Public Use
  Company Number: US-CELGENEUS-163-21880-13123236

PATIENT
  Age: 73 Year
  Sex: Female

DRUGS (4)
  1. REVLIMID [Suspect]
     Indication: MYELODYSPLASTIC SYNDROME
     Dosage: 10 MILLIGRAM
     Route: 048
     Dates: start: 201309
  2. BLOOD [Concomitant]
     Indication: WHITE BLOOD CELL COUNT DECREASED
     Dosage: 2 UNITS
     Route: 041
     Dates: start: 20131206
  3. BLOOD [Concomitant]
     Indication: RED BLOOD CELL COUNT DECREASED
  4. BLOOD THINNERS [Concomitant]
     Indication: THROMBOSIS
     Route: 065

REACTIONS (3)
  - White blood cell count decreased [Unknown]
  - Red blood cell count decreased [Unknown]
  - Thrombosis [Unknown]
